FAERS Safety Report 8354176-4 (Version None)
Quarter: 2012Q2

REPORT INFORMATION
  Report Type: 
  Country: None (occurrence: None)
  Receive Date: 20120511
  Receipt Date: 20120507
  Transmission Date: 20120825
  Serious: Yes (Hospitalization, Other)
  Sender: FDA-Public Use
  Company Number: PHHY2012FR002609

PATIENT
  Sex: Female

DRUGS (6)
  1. AMOXICILLIN [Concomitant]
     Indication: BRONCHITIS
     Dosage: 1 DF, TID
     Route: 048
     Dates: start: 20111213
  2. CANDESARTAN CILEXETIL AND HYDROCHLOROTHIAZIDE [Suspect]
     Indication: HYPERTENSION
     Dosage: 1 DF, QD
     Route: 048
     Dates: end: 20111218
  3. BISOPROLOL FUMARATE [Suspect]
     Indication: HYPERTENSION
     Dosage: 10 MG, QD
     Route: 048
     Dates: end: 20111218
  4. FENOFIBRATE [Concomitant]
     Dosage: 145 MG, QD
     Route: 048
  5. ACETAMINOPHEN [Concomitant]
     Dosage: 1000 MG, PER DAY
     Route: 048
     Dates: start: 20111213
  6. NICARDIPINE HYDROCHLORIDE [Suspect]
     Indication: HYPERTENSION
     Dosage: 50 MG, BID
     Route: 048

REACTIONS (15)
  - C-REACTIVE PROTEIN INCREASED [None]
  - DYSPNOEA [None]
  - BLOOD CREATINE PHOSPHOKINASE INCREASED [None]
  - CANDIDURIA [None]
  - CREATININE RENAL CLEARANCE DECREASED [None]
  - DEHYDRATION [None]
  - DRY SKIN [None]
  - BLOOD URINE PRESENT [None]
  - ORTHOSTATIC HYPOTENSION [None]
  - FALL [None]
  - RENAL FAILURE [None]
  - RHABDOMYOLYSIS [None]
  - WHITE BLOOD CELLS URINE POSITIVE [None]
  - MALAISE [None]
  - DISORIENTATION [None]
